FAERS Safety Report 5334273-8 (Version None)
Quarter: 2007Q2

REPORT INFORMATION
  Report Type: 
  Country: None (occurrence: None)
  Receive Date: 20070525
  Receipt Date: 20070515
  Transmission Date: 20071010
  Serious: Yes (Other)
  Sender: FDA-Public Use
  Company Number: PHEH2007US05645

PATIENT
  Age: 55 Year
  Sex: Female

DRUGS (16)
  1. ZELNORM [Suspect]
     Indication: CONSTIPATION
     Dosage: 6 MG, QID
     Route: 048
     Dates: start: 20060101, end: 20070401
  2. PREVACID [Concomitant]
     Dosage: 30MG, UNK
  3. LYRICA [Concomitant]
     Dosage: 50MG, UNK
  4. FLUCONAZOLE [Concomitant]
     Dosage: 100MG, UNK
  5. SULFAMETHOXAZOLE W/TRIMETHOPRIM [Concomitant]
     Dosage: 800/160MG, UNK
  6. NYSTOP [Concomitant]
     Dosage: UNK, UNK
  7. ZANAFLEX [Concomitant]
     Dosage: 4MG, UNK
  8. LEVOTHYROXINE SODIUM [Concomitant]
     Dosage: 0.025MG, UNK
  9. ZONISAMIDE [Concomitant]
     Dosage: 100MG, UNK
  10. FENTANYL [Concomitant]
     Dosage: 50MCG/HR, UNK
  11. OXYCODONE HCL AND ACETAMINOPHEN [Concomitant]
     Dosage: 10-325MG, UNK
  12. HYDROCHLOROTHIAZIDE [Concomitant]
     Dosage: 25MG, UNK
  13. POLYETHYLENE GLYCOL [Concomitant]
     Dosage: UNKK, UNK
  14. ACULAR [Concomitant]
     Dosage: 0.4% SOL, UNK
  15. PREDNISOLONE ACETATE [Concomitant]
     Dosage: 1% OPTH SOL, UNK
  16. AMITIZA [Concomitant]
     Dosage: UNK, UNK

REACTIONS (5)
  - ABDOMINAL PAIN [None]
  - CARDIAC DISORDER [None]
  - CHEST PAIN [None]
  - PAIN [None]
  - RECTAL HAEMORRHAGE [None]
